FAERS Safety Report 9341292 (Version 1)
Quarter: 2013Q2

REPORT INFORMATION
  Report Type: Spontaneous
  Country: BR (occurrence: BR)
  Receive Date: 20130611
  Receipt Date: 20130611
  Transmission Date: 20140414
  Serious: Yes (Other)
  Sender: FDA-Public Use
  Company Number: BR-ROCHE-1232464

PATIENT
  Sex: Female

DRUGS (2)
  1. HERCEPTIN [Suspect]
     Indication: BREAST CANCER
     Route: 065
  2. TAMOXIFEN [Concomitant]

REACTIONS (3)
  - Disease progression [Unknown]
  - Breast cancer recurrent [Unknown]
  - Cardiac disorder [Unknown]
